FAERS Safety Report 17467596 (Version 1)
Quarter: 2020Q1

REPORT INFORMATION
  Report Type: Spontaneous
  Country: US (occurrence: US)
  Receive Date: 20200226
  Receipt Date: 20200226
  Transmission Date: 20200409
  Serious: Yes (Disabling)
  Sender: FDA-Public Use
  Company Number: None

PATIENT
  Age: 19 Year
  Sex: Female
  Weight: 54 kg

DRUGS (6)
  1. ETONOGESTREL/ETHINYL ESTRADIOL [Suspect]
     Active Substance: ETHINYL ESTRADIOL\ETONOGESTREL
     Indication: MENORRHAGIA
     Dosage: ?          QUANTITY:1 RING;OTHER FREQUENCY:1 RING FOR 3 WEEKS;?
     Route: 067
     Dates: start: 20200113
  2. ETONOGESTREL/ETHINYL ESTRADIOL [Suspect]
     Active Substance: ETHINYL ESTRADIOL\ETONOGESTREL
     Indication: CONTRACEPTION
     Dosage: ?          QUANTITY:1 RING;OTHER FREQUENCY:1 RING FOR 3 WEEKS;?
     Route: 067
     Dates: start: 20200113
  3. EE VAGINAL RING [Concomitant]
  4. IBUPROFEN. [Concomitant]
     Active Substance: IBUPROFEN
  5. ETONOGESTREL/ETHINYL ESTRADIOL [Suspect]
     Active Substance: ETHINYL ESTRADIOL\ETONOGESTREL
     Indication: DYSMENORRHOEA
     Dosage: ?          QUANTITY:1 RING;OTHER FREQUENCY:1 RING FOR 3 WEEKS;?
     Route: 067
     Dates: start: 20200113
  6. VITAMIN B12 [Concomitant]
     Active Substance: CYANOCOBALAMIN

REACTIONS (9)
  - Medical device site pain [None]
  - Product quality issue [None]
  - Insurance issue [None]
  - Mental disorder [None]
  - Migraine [None]
  - Device dislocation [None]
  - Metrorrhagia [None]
  - Product substitution issue [None]
  - Depression [None]
